FAERS Safety Report 10778858 (Version 1)
Quarter: 2015Q1

REPORT INFORMATION
  Report Type: Spontaneous
  Country: US (occurrence: US)
  Receive Date: 20150210
  Receipt Date: 20150210
  Transmission Date: 20150721
  Serious: No
  Sender: FDA-Public Use
  Company Number: US-TEVA-536299USA

PATIENT
  Age: 12 Year
  Sex: Female

DRUGS (1)
  1. MONTELUKAST [Suspect]
     Active Substance: MONTELUKAST SODIUM
     Indication: ASTHMA
     Route: 065
     Dates: start: 20141231, end: 20150123

REACTIONS (3)
  - Drug hypersensitivity [Unknown]
  - Urticaria [Not Recovered/Not Resolved]
  - Product odour abnormal [Unknown]

NARRATIVE: CASE EVENT DATE: 20141231
